FAERS Safety Report 8282304-8 (Version None)
Quarter: 2012Q2

REPORT INFORMATION
  Report Type: 
  Country: None (occurrence: None)
  Receive Date: 20120413
  Receipt Date: 20120413
  Transmission Date: 20120825
  Serious: Yes (Other)
  Sender: FDA-Public Use
  Company Number: None

PATIENT
  Sex: Male

DRUGS (1)
  1. KEPPRA [Suspect]
     Dosage: 500
     Route: 048

REACTIONS (3)
  - SLEEP DISORDER [None]
  - CONVULSION [None]
  - IRRITABILITY [None]
